FAERS Safety Report 23354068 (Version 1)
Quarter: 2024Q1

REPORT INFORMATION
  Report Type: Other
  Country: RU (occurrence: None)
  Receive Date: 20240101
  Receipt Date: 20240101
  Transmission Date: 20240409
  Serious: Yes (Other)
  Sender: FDA-Public Use
  Company Number: RU-ROCHE-3483758

PATIENT
  Age: 52 Year
  Sex: Male

DRUGS (16)
  1. RITUXIMAB [Suspect]
     Active Substance: RITUXIMAB
     Indication: Systemic lupus erythematosus
     Route: 042
  2. RITUXIMAB [Suspect]
     Active Substance: RITUXIMAB
     Indication: Sjogren^s syndrome
  3. MOXIFLOXACIN [Concomitant]
     Active Substance: MOXIFLOXACIN
  4. AMOXICILLIN\CLAVULANIC ACID [Concomitant]
     Active Substance: AMOXICILLIN\CLAVULANIC ACID
  5. METIPRED [Concomitant]
     Active Substance: METHYLPREDNISOLONE
  6. PREDNISOLONE [Concomitant]
     Active Substance: PREDNISOLONE
  7. PREDNISOLONE [Concomitant]
     Active Substance: PREDNISOLONE
     Dosage: FURTHER DOSE REDUCTION TO 2.5 MG/DAY.
  8. PREDNISOLONE [Concomitant]
     Active Substance: PREDNISOLONE
     Dosage: 1.5 TABLETS DAILY
  9. DEXAMETHASONE [Concomitant]
     Active Substance: DEXAMETHASONE
  10. DEXAMETHASONE [Concomitant]
     Active Substance: DEXAMETHASONE
     Dosage: 1.5 TABLETS DAILY (1.5 MG)
  11. CARBOCYSTEINE [Concomitant]
     Active Substance: CARBOCYSTEINE
  12. AMBROXOL [Concomitant]
     Active Substance: AMBROXOL
  13. FENOTEROL [Concomitant]
     Active Substance: FENOTEROL
     Dosage: NEBULISER THERAPY
  14. IPRATROPIUM BROMIDE [Concomitant]
     Active Substance: IPRATROPIUM BROMIDE\IPRATROPIUM BROMIDE ANHYDROUS
  15. BUDESONIDE [Concomitant]
     Active Substance: BUDESONIDE
  16. ACETAMINOPHEN [Concomitant]
     Active Substance: ACETAMINOPHEN

REACTIONS (3)
  - Post-acute COVID-19 syndrome [Recovered/Resolved]
  - Interstitial lung disease [Unknown]
  - SARS-CoV-2 antibody test negative [Unknown]
